FAERS Safety Report 19964416 (Version 1)
Quarter: 2021Q4

REPORT INFORMATION
  Report Type: Report from Study
  Country: PE (occurrence: PE)
  Receive Date: 20211018
  Receipt Date: 20211018
  Transmission Date: 20220303
  Serious: Yes (Hospitalization, Other)
  Sender: FDA-Public Use
  Company Number: PE-NALPROPION PHARMACEUTICALS INC.-2021-014232

PATIENT

DRUGS (3)
  1. CONTRAVE [Suspect]
     Active Substance: BUPROPION HYDROCHLORIDE\NALTREXONE HYDROCHLORIDE
     Indication: Obesity
     Dosage: 8MG / 90MG (1 DF, 1 IN 1 D)
     Route: 048
     Dates: start: 20210817
  2. CONTRAVE [Suspect]
     Active Substance: BUPROPION HYDROCHLORIDE\NALTREXONE HYDROCHLORIDE
     Dosage: 8MG / 90MG (4 DF, 1 IN 1 D)
     Route: 048
     Dates: start: 20210907
  3. METFORMIN [Concomitant]
     Active Substance: METFORMIN HYDROCHLORIDE
     Indication: Glucose tolerance impaired
     Dosage: UNK

REACTIONS (1)
  - Nasal operation [Not Recovered/Not Resolved]

NARRATIVE: CASE EVENT DATE: 20210901
